FAERS Safety Report 25181145 (Version 1)
Quarter: 2025Q2

REPORT INFORMATION
  Report Type: Report from Study
  Country: US (occurrence: US)
  Receive Date: 20250410
  Receipt Date: 20250410
  Transmission Date: 20250717
  Serious: Yes (Hospitalization, Other)
  Sender: ABBVIE
  Company Number: US-ABBVIE-5789131

PATIENT
  Age: 84 Year
  Sex: Female

DRUGS (1)
  1. HUMIRA [Suspect]
     Active Substance: ADALIMUMAB
     Indication: Rheumatoid arthritis
     Route: 058

REACTIONS (10)
  - Haematotoxicity [Unknown]
  - Device use error [Not Recovered/Not Resolved]
  - Peripheral swelling [Unknown]
  - Bladder disorder [Unknown]
  - Ankle fracture [Unknown]
  - Fall [Unknown]
  - Cerebrovascular accident [Unknown]
  - Cerebral haemorrhage [Unknown]
  - Hip fracture [Unknown]
  - Spinal operation [Unknown]

NARRATIVE: CASE EVENT DATE: 20240512
